FAERS Safety Report 4395412-9 (Version None)
Quarter: 2004Q3

REPORT INFORMATION
  Report Type: 
  Country: None (occurrence: None)
  Receive Date: 20040712
  Receipt Date: 20040712
  Transmission Date: 20050211
  Serious: No
  Sender: FDA-Public Use
  Company Number: None

PATIENT
  Age: 54 Year
  Sex: Male

DRUGS (6)
  1. OMNIPAQUE 300 [Suspect]
     Indication: CATHETERISATION CARDIAC
     Dosage: 200 ML ONCE INTRAVENOUS
     Route: 042
     Dates: start: 20040707, end: 20040707
  2. OMNIPAQUE 300 [Suspect]
     Indication: SCAN WITH CONTRAST
     Dosage: 200 ML ONCE INTRAVENOUS
     Route: 042
     Dates: start: 20040707, end: 20040707
  3. ANGIOMAX [Concomitant]
  4. SOLU-MEDROL [Concomitant]
  5. NITROGLYCERIN [Concomitant]
  6. HEPARIN [Concomitant]

REACTIONS (2)
  - CARDIAC ARREST [None]
  - PROCEDURAL COMPLICATION [None]
